FAERS Safety Report 4969400-5 (Version None)
Quarter: 2006Q2

REPORT INFORMATION
  Report Type: 
  Country: None (occurrence: None)
  Receive Date: 20060405
  Receipt Date: 20060328
  Transmission Date: 20061013
  Serious: Yes (Hospitalization)
  Sender: FDA-Public Use
  Company Number: CIP06000708

PATIENT
  Age: 59 Year
  Sex: Male

DRUGS (4)
  1. ASACOL [Suspect]
     Indication: COLITIS ULCERATIVE
     Dosage: 800 MG THREE TIMES DAILY, ORAL; 1200 MG THREE TIMES DAILY, ORAL
     Route: 048
     Dates: start: 19970101, end: 20060101
  2. ASACOL [Suspect]
     Indication: COLITIS ULCERATIVE
     Dosage: 800 MG THREE TIMES DAILY, ORAL; 1200 MG THREE TIMES DAILY, ORAL
     Route: 048
     Dates: start: 20060101
  3. ROWASA (MESALAZINE) SUPPOSITORY [Concomitant]
  4. ENTOCORT EC [Concomitant]

REACTIONS (3)
  - COLITIS ULCERATIVE [None]
  - CONDITION AGGRAVATED [None]
  - RENAL CELL CARCINOMA STAGE UNSPECIFIED [None]
